FAERS Safety Report 6110030-X (Version None)
Quarter: 2009Q1

REPORT INFORMATION
  Report Type: 
  Country: None (occurrence: None)
  Receive Date: 20090310
  Receipt Date: 20081211
  Transmission Date: 20090719
  Serious: No
  Sender: FDA-Public Use
  Company Number: A0759959A

PATIENT
  Age: 65 Year
  Sex: Female

DRUGS (2)
  1. NICORETTE WHITE ICE OTC 2MG [Suspect]
  2. NICORETTE [Suspect]

REACTIONS (2)
  - INTENTIONAL DRUG MISUSE [None]
  - PRODUCT QUALITY ISSUE [None]
